FAERS Safety Report 15297752 (Version 3)
Quarter: 2019Q2

REPORT INFORMATION
  Report Type: Other
  Country: CA (occurrence: CA)
  Receive Date: 20180820
  Receipt Date: 20190523
  Transmission Date: 20190711
  Serious: Yes (Other)
  Sender: FDA-Public Use
  Company Number: CA-PFIZER INC-2018330341

PATIENT
  Age: 55 Year
  Sex: Female
  Weight: 63 kg

DRUGS (12)
  1. FLUDROCORTISONE ACETATE. [Concomitant]
     Active Substance: FLUDROCORTISONE ACETATE
     Indication: ADDISON^S DISEASE
     Dosage: 0.1 MG, 1X/DAY
     Route: 048
  2. CORTEF [Interacting]
     Active Substance: HYDROCORTISONE
     Dosage: 10 MG, 4X/DAY
     Route: 048
  3. CORTEF [Interacting]
     Active Substance: HYDROCORTISONE
     Dosage: 10 MG, 4X/DAY
     Route: 048
  4. CORTEF [Interacting]
     Active Substance: HYDROCORTISONE
     Dosage: 10 MG, 2X/DAY
     Route: 048
  5. ABILIFY [Interacting]
     Active Substance: ARIPIPRAZOLE
     Indication: DELUSIONAL DISORDER, UNSPECIFIED TYPE
     Dosage: 7 MG, UNK
     Route: 048
  6. CORTEF [Interacting]
     Active Substance: HYDROCORTISONE
     Dosage: 10 MG, 3X/DAY
     Route: 048
  7. ABILIFY [Interacting]
     Active Substance: ARIPIPRAZOLE
     Dosage: 7 MG, 1X/DAY
     Route: 048
  8. ABILIFY [Interacting]
     Active Substance: ARIPIPRAZOLE
     Dosage: 7 MG, UNK
     Route: 048
  9. SYNTHROID [Interacting]
     Active Substance: LEVOTHYROXINE SODIUM
     Indication: HYPOTHYROIDISM
     Dosage: 75 MG, 1X/DAY
     Route: 048
  10. CORTEF [Suspect]
     Active Substance: HYDROCORTISONE
     Indication: ADDISON^S DISEASE
     Dosage: 10 MG, UNK
     Route: 048
  11. ABILIFY [Interacting]
     Active Substance: ARIPIPRAZOLE
     Dosage: 5 MG, UNK
     Route: 048
  12. ABILIFY [Interacting]
     Active Substance: ARIPIPRAZOLE
     Dosage: 10 MG, UNK
     Route: 048

REACTIONS (3)
  - Addison^s disease [Unknown]
  - Disease recurrence [Unknown]
  - Drug interaction [Unknown]
